FAERS Safety Report 16526735 (Version 5)
Quarter: 2019Q3

REPORT INFORMATION
  Report Type: Report from Study
  Country: IL (occurrence: IL)
  Receive Date: 20190704
  Receipt Date: 20190828
  Transmission Date: 20191004
  Serious: Yes (Hospitalization, Other)
  Sender: FDA-Public Use
  Company Number: IL-ACTELION-A-CH2019-192218

PATIENT
  Age: 69 Year
  Sex: Male
  Weight: 71 kg

DRUGS (11)
  1. FUSID (FUROSEMIDE) [Suspect]
     Active Substance: FUROSEMIDE
     Indication: PRODUCT USED FOR UNKNOWN INDICATION
     Dosage: UNK
     Route: 065
     Dates: start: 201901
  2. AMIODACORE [Concomitant]
     Dosage: UNK
     Dates: start: 201810
  3. SPIRONOLACTONE. [Concomitant]
     Active Substance: SPIRONOLACTONE
     Dosage: UNK
     Dates: start: 201810
  4. MACITENTAN [Suspect]
     Active Substance: MACITENTAN
     Indication: CARDIAC FAILURE
     Dosage: 10 MG, OD
     Route: 048
     Dates: start: 20190212, end: 20190622
  5. MACITENTAN [Suspect]
     Active Substance: MACITENTAN
     Dosage: 10 MG, OD
     Route: 048
     Dates: start: 20190108, end: 20190211
  6. ZAROXOLYN [Suspect]
     Active Substance: METOLAZONE
     Indication: PRODUCT USED FOR UNKNOWN INDICATION
     Dosage: UNK
     Route: 065
     Dates: start: 201905
  7. GLUCOPHAGE [Concomitant]
     Active Substance: METFORMIN HYDROCHLORIDE
     Dosage: UNK
     Dates: start: 201503
  8. ELIQUIS [Concomitant]
     Active Substance: APIXABAN
     Dosage: UNK
     Dates: start: 201802
  9. MACITENTAN [Suspect]
     Active Substance: MACITENTAN
     Indication: PULMONARY VASCULAR DISORDER
     Dosage: 10 MG, OD
     Route: 048
     Dates: start: 20181211, end: 20190107
  10. CARDILOC [Concomitant]
     Active Substance: BISOPROLOL FUMARATE
     Dosage: UNK
     Dates: start: 200901
  11. EUTHYROX [Concomitant]
     Active Substance: LEVOTHYROXINE SODIUM
     Dosage: UNK
     Dates: start: 201811

REACTIONS (9)
  - Pericarditis constrictive [Unknown]
  - Hyponatraemia [Recovered/Resolved]
  - Vomiting [Recovered/Resolved]
  - Cardiac failure [Unknown]
  - Acute kidney injury [Recovered/Resolved]
  - Asthenia [Recovered/Resolved]
  - Renal impairment [Recovered/Resolved]
  - Delirium [Recovered/Resolved]
  - Fluid retention [Unknown]

NARRATIVE: CASE EVENT DATE: 20190618
